FAERS Safety Report 6795512-X (Version None)
Quarter: 2010Q2

REPORT INFORMATION
  Report Type: 
  Country: None (occurrence: None)
  Receive Date: 20100625
  Receipt Date: 20100616
  Transmission Date: 20101027
  Serious: Yes (Death)
  Sender: FDA-Public Use
  Company Number: US-JNJFOC-20100605682

PATIENT
  Age: 81 Year
  Sex: Female

DRUGS (2)
  1. REMICADE [Suspect]
     Indication: RHEUMATOID ARTHRITIS
     Dosage: COUPLE OF YEARS
     Route: 042
  2. REMICADE [Suspect]
     Route: 042

REACTIONS (6)
  - CARDIAC FAILURE CONGESTIVE [None]
  - CARDIAC OPERATION [None]
  - DEATH [None]
  - INFUSION RELATED REACTION [None]
  - PROCEDURAL COMPLICATION [None]
  - UNEVALUABLE EVENT [None]
